FAERS Safety Report 5262480-1 (Version None)
Quarter: 2007Q1

REPORT INFORMATION
  Report Type: 
  Country: None (occurrence: None)
  Receive Date: 20070309
  Receipt Date: 20070309
  Transmission Date: 20070707
  Serious: Yes (Hospitalization)
  Sender: FDA-Public Use
  Company Number: None

PATIENT
  Age: 53 Year
  Sex: Female
  Weight: 61.2356 kg

DRUGS (1)
  1. PROMETRIUM [Suspect]
     Indication: ENDOMETRIAL HYPERPLASIA
     Dosage: 200MG  DAILY  047
     Dates: start: 20070119, end: 20070129

REACTIONS (11)
  - ABNORMAL BEHAVIOUR [None]
  - AMNESIA [None]
  - DIZZINESS [None]
  - EMOTIONAL DISORDER [None]
  - HALLUCINATION [None]
  - INTENTIONAL DRUG MISUSE [None]
  - MEDICATION ERROR [None]
  - MYOCLONUS [None]
  - SPEECH DISORDER [None]
  - SYNCOPE [None]
  - VISION BLURRED [None]
